FAERS Safety Report 6773353-7 (Version None)
Quarter: 2010Q2

REPORT INFORMATION
  Report Type: 
  Country: None (occurrence: None)
  Receive Date: 20100616
  Receipt Date: 20100610
  Transmission Date: 20101027
  Serious: Yes (Hospitalization)
  Sender: FDA-Public Use
  Company Number: US-GILEAD-2010-0029148

PATIENT
  Sex: Female

DRUGS (9)
  1. LETAIRIS [Suspect]
     Indication: PULMONARY ARTERIAL HYPERTENSION
     Route: 048
     Dates: start: 20100414
  2. ASPIRIN [Suspect]
  3. COUMADIN [Suspect]
  4. ADCIRCA [Concomitant]
  5. LISINOPRIL [Concomitant]
  6. SPIRONOLACTONE [Concomitant]
  7. LEVOTHYROXINE SODIUM [Concomitant]
  8. MUCINEX [Concomitant]
  9. TYLENOL [Concomitant]

REACTIONS (2)
  - HAEMOGLOBIN DECREASED [None]
  - OCCULT BLOOD POSITIVE [None]
